FAERS Safety Report 15334785 (Version 1)
Quarter: 2018Q3

REPORT INFORMATION
  Report Type: Spontaneous
  Country: US (occurrence: US)
  Receive Date: 20180830
  Receipt Date: 20180830
  Transmission Date: 20181010
  Serious: No
  Sender: FDA-Public Use
  Company Number: US-MYLANLABS-2018M1062980

PATIENT
  Age: 3 Decade
  Sex: Female

DRUGS (1)
  1. XULANE [Suspect]
     Active Substance: ETHINYL ESTRADIOL\NORELGESTROMIN
     Indication: CONTRACEPTION
     Dosage: 150 ?G, UNK
     Route: 062

REACTIONS (2)
  - Application site vesicles [Not Recovered/Not Resolved]
  - Skin discolouration [Not Recovered/Not Resolved]
